FAERS Safety Report 8588856-2 (Version None)
Quarter: 2012Q3

REPORT INFORMATION
  Report Type: 
  Country: None (occurrence: None)
  Receive Date: 20120813
  Receipt Date: 20120806
  Transmission Date: 20120928
  Serious: Yes (Other)
  Sender: FDA-Public Use
  Company Number: BR-PFIZER INC-2012191815

PATIENT
  Age: 51 Year
  Sex: Female
  Weight: 70 kg

DRUGS (1)
  1. TOLTERODINE TARTRATE [Suspect]
     Indication: URINARY INCONTINENCE
     Dosage: 4 MG, ONE CAPSULE ONCE DAILY
     Route: 048
     Dates: start: 20120101, end: 20120101

REACTIONS (2)
  - BLADDER DISORDER [None]
  - VULVAL DISORDER [None]
